FAERS Safety Report 22050320 (Version 1)
Quarter: 2023Q1

REPORT INFORMATION
  Report Type: Spontaneous
  Country: HR (occurrence: HR)
  Receive Date: 20230301
  Receipt Date: 20230301
  Transmission Date: 20230418
  Serious: Yes (Other)
  Sender: FDA-Public Use
  Company Number: HR-002147023-NVSC2023HR015178

PATIENT
  Age: 53 Year
  Sex: Female

DRUGS (2)
  1. FINGOLIMOD [Suspect]
     Active Substance: FINGOLIMOD
     Indication: Relapsing-remitting multiple sclerosis
     Dosage: 0.5 MG(DISCONTINUED AFTER 3 YR OF THERAPY)
     Route: 048
     Dates: start: 201609, end: 2019
  2. FINGOLIMOD [Suspect]
     Active Substance: FINGOLIMOD
     Dosage: UNK,(STARTED 3 MONTHS AFTER DISCONTINUATION)
     Route: 065
     Dates: start: 2022, end: 202212

REACTIONS (4)
  - Lymphopenia [Recovering/Resolving]
  - Decreased immune responsiveness [Unknown]
  - Oedema peripheral [Unknown]
  - Herpes dermatitis [Unknown]

NARRATIVE: CASE EVENT DATE: 20210101
